FAERS Safety Report 7758377-5 (Version None)
Quarter: 2011Q3

REPORT INFORMATION
  Report Type: 
  Country: None (occurrence: None)
  Receive Date: 20110919
  Receipt Date: 20110908
  Transmission Date: 20111222
  Serious: Yes (Other)
  Sender: FDA-Public Use
  Company Number: US-GENZYME-THYM-1002753

PATIENT
  Sex: Male

DRUGS (6)
  1. PROGRAF [Concomitant]
     Indication: IMMUNOSUPPRESSION
  2. PREDNISONE [Concomitant]
     Indication: IMMUNOSUPPRESSION
     Route: 048
  3. CAMPATH [Concomitant]
     Indication: PROPHYLAXIS AGAINST TRANSPLANT REJECTION
     Dosage: UNK
  4. NYSTATIN [Concomitant]
     Indication: PRODUCT USED FOR UNKNOWN INDICATION
     Dosage: UNK
  5. THYMOGLOBULIN [Suspect]
     Indication: KIDNEY TRANSPLANT REJECTION
     Dosage: 175 MG, UNK
     Route: 042
     Dates: start: 20110903, end: 20110905
  6. VALCYTE [Concomitant]
     Indication: ANTIVIRAL TREATMENT

REACTIONS (2)
  - PRURITUS GENERALISED [None]
  - RASH [None]
